FAERS Safety Report 9502109 (Version 3)
Quarter: 2013Q4

REPORT INFORMATION
  Report Type: Spontaneous
  Country: US (occurrence: US)
  Receive Date: 20130905
  Receipt Date: 20131119
  Transmission Date: 20140711
  Serious: Yes (Hospitalization, Other)
  Sender: FDA-Public Use
  Company Number: US-009507513-1308USA014498

PATIENT
  Sex: Female
  Weight: 46.71 kg

DRUGS (3)
  1. FOSAMAX [Suspect]
     Indication: OSTEOPOROSIS
     Dosage: 70 MG, QW
     Route: 048
     Dates: start: 200201, end: 200707
  2. ALENDRONATE SODIUM [Suspect]
     Indication: OSTEOPOROSIS
     Dosage: 70 MG, QW
     Route: 048
     Dates: start: 200805, end: 20110926
  3. EVISTA [Concomitant]
     Indication: OSTEOPOROSIS
     Dosage: 60 MG, UNK
     Dates: start: 2006, end: 2010

REACTIONS (27)
  - Transient global amnesia [Unknown]
  - Escherichia urinary tract infection [Unknown]
  - Hepatic function abnormal [Unknown]
  - Renal failure chronic [Not Recovered/Not Resolved]
  - Osteonecrosis of jaw [Unknown]
  - Oral infection [Unknown]
  - Dental caries [Unknown]
  - Adverse event [Unknown]
  - Nerve injury [Unknown]
  - Pain [Unknown]
  - Oroantral fistula [Unknown]
  - Oral surgery [Unknown]
  - Oral bacterial infection [Unknown]
  - Peripheral nerve decompression [Unknown]
  - Intervertebral disc degeneration [Unknown]
  - Lumbar spinal stenosis [Unknown]
  - Bundle branch block left [Unknown]
  - Anxiety disorder [Unknown]
  - Vestibular disorder [Unknown]
  - Bunion operation [Unknown]
  - Pulmonary mass [Unknown]
  - Pollakiuria [Unknown]
  - Maxillofacial operation [Unknown]
  - Oral surgery [Unknown]
  - Pain in extremity [Unknown]
  - Osteomyelitis [Not Recovered/Not Resolved]
  - Gastrooesophageal reflux disease [Unknown]
